FAERS Safety Report 16654143 (Version 2)
Quarter: 2019Q3

REPORT INFORMATION
  Report Type: Spontaneous
  Country: US (occurrence: US)
  Receive Date: 20190731
  Receipt Date: 20190816
  Transmission Date: 20191004
  Serious: No
  Sender: FDA-Public Use
  Company Number: US-SA-2019SA191388

PATIENT
  Age: 44 Year
  Sex: Female

DRUGS (1)
  1. CABLIVI [Suspect]
     Active Substance: CAPLACIZUMAB-YHDP
     Indication: THROMBOTIC MICROANGIOPATHY
     Dosage: 11 MG
     Route: 058
     Dates: start: 20190715

REACTIONS (5)
  - Unevaluable event [Not Recovered/Not Resolved]
  - Epistaxis [Unknown]
  - Platelet count abnormal [Unknown]
  - Lip haemorrhage [Unknown]
  - Headache [Unknown]

NARRATIVE: CASE EVENT DATE: 20190719
